FAERS Safety Report 5661654-5 (Version None)
Quarter: 2008Q1

REPORT INFORMATION
  Report Type: 
  Country: None (occurrence: None)
  Receive Date: 20080312
  Receipt Date: 20080307
  Transmission Date: 20080703
  Serious: Yes (Other)
  Sender: FDA-Public Use
  Company Number: ES-BRISTOL-MYERS SQUIBB COMPANY-14035125

PATIENT
  Age: 35 Year
  Sex: Female

DRUGS (2)
  1. BARACLUDE [Suspect]
     Indication: HEPATITIS B
     Route: 048
     Dates: start: 20070822
  2. ANTIDEPRESSANT [Suspect]

REACTIONS (2)
  - ABORTION INDUCED [None]
  - PREGNANCY [None]
